FAERS Safety Report 12711523 (Version 5)
Quarter: 2018Q4

REPORT INFORMATION
  Report Type: Spontaneous
  Country: US (occurrence: US)
  Receive Date: 20160902
  Receipt Date: 20181121
  Transmission Date: 20190204
  Serious: No
  Sender: FDA-Public Use
  Company Number: US-PFIZER INC-2016139926

PATIENT
  Age: 2 Year
  Sex: Female
  Weight: 13 kg

DRUGS (10)
  1. RAPAMUNE [Suspect]
     Active Substance: SIROLIMUS
     Dosage: 5 ML, DAILY (5MG TOTAL)
     Route: 048
     Dates: start: 20170808
  2. PHENOBARBITAL. [Concomitant]
     Active Substance: PHENOBARBITAL
     Indication: SEIZURE
     Dosage: 8.5 ML, TWICE DAILY
     Route: 048
     Dates: start: 201402
  3. TOPAMAX [Concomitant]
     Active Substance: TOPIRAMATE
     Dosage: UNK
     Dates: start: 201404
  4. PHENOBARBITAL. [Concomitant]
     Active Substance: PHENOBARBITAL
     Dosage: UNK
     Dates: start: 201402
  5. RAPAMUNE [Suspect]
     Active Substance: SIROLIMUS
     Indication: EPILEPSY
     Dosage: 0.75 MG, DAILY (FOR 1 WEEK)
     Route: 048
     Dates: start: 201602
  6. RAPAMUNE [Suspect]
     Active Substance: SIROLIMUS
     Dosage: 2 MG/ML, DAILY
     Route: 048
  7. RAPAMUNE [Suspect]
     Active Substance: SIROLIMUS
     Indication: RENAL ARTERY DISSECTION
     Dosage: 1 ML, DAILY
     Route: 048
  8. OXCARBAZEPINE. [Concomitant]
     Active Substance: OXCARBAZEPINE
     Indication: SEIZURE
     Dosage: 2.5 ML, TWICE DAILY
     Route: 048
     Dates: start: 201602
  9. RAPAMUNE [Suspect]
     Active Substance: SIROLIMUS
     Dosage: 2 ML, DAILY
     Route: 048
     Dates: start: 20160901
  10. TOPAMAX [Concomitant]
     Active Substance: TOPIRAMATE
     Indication: SEIZURE
     Dosage: 75 MG, TWICE DAILY
     Route: 048
     Dates: start: 201404

REACTIONS (2)
  - Drug level decreased [Recovered/Resolved]
  - Product use in unapproved indication [Not Recovered/Not Resolved]

NARRATIVE: CASE EVENT DATE: 201602
